FAERS Safety Report 20833154 (Version 1)
Quarter: 2022Q2

REPORT INFORMATION
  Report Type: Spontaneous
  Country: US (occurrence: US)
  Receive Date: 20220516
  Receipt Date: 20220516
  Transmission Date: 20220721
  Serious: No
  Sender: FDA-Public Use
  Company Number: US-BAUSCH-BL-2022-011813

PATIENT
  Age: 76 Year
  Sex: Female

DRUGS (2)
  1. LUMIFY [Suspect]
     Active Substance: BRIMONIDINE TARTRATE
     Indication: Eye disorder
     Dosage: 1 GTT, 1 DROP INTO BOTH EYES
     Route: 047
     Dates: start: 20220510
  2. LUMIFY [Suspect]
     Active Substance: BRIMONIDINE TARTRATE

REACTIONS (2)
  - Eye disorder [Unknown]
  - Eye colour change [Unknown]

NARRATIVE: CASE EVENT DATE: 20220510
